FAERS Safety Report 19883813 (Version 1)
Quarter: 2021Q3

REPORT INFORMATION
  Report Type: Spontaneous
  Country: US (occurrence: US)
  Receive Date: 20210923
  Receipt Date: 20210923
  Transmission Date: 20211014
  Serious: No
  Sender: FDA-Public Use
  Company Number: None

PATIENT
  Age: 48 Year
  Sex: Female

DRUGS (1)
  1. AFINITOR [Suspect]
     Active Substance: EVEROLIMUS
     Route: 048
     Dates: start: 20201221

REACTIONS (11)
  - Infection [None]
  - Wound secretion [None]
  - Candida infection [None]
  - Pustule [None]
  - Diarrhoea [None]
  - Stomatitis [None]
  - Nausea [None]
  - Swelling face [None]
  - Alopecia [None]
  - Neutropenia [None]
  - Vomiting [None]

NARRATIVE: CASE EVENT DATE: 20210404
